FAERS Safety Report 13662939 (Version 3)
Quarter: 2018Q1

REPORT INFORMATION
  Report Type: Report from Study
  Country: NL (occurrence: NL)
  Receive Date: 20170619
  Receipt Date: 20180306
  Transmission Date: 20180508
  Serious: Yes (Hospitalization)
  Sender: FDA-Public Use
  Company Number: NL-ROCHE-1951165

PATIENT
  Age: 56 Year
  Sex: Female

DRUGS (2)
  1. COBIMETINIB. [Suspect]
     Active Substance: COBIMETINIB
     Indication: OVARIAN CANCER METASTATIC
     Dosage: MOST RECENT DOSE 7/JUN/2017 PRIOR TO SERIOUS ADVERSE EVENT (SAE).
     Route: 048
     Dates: start: 20170515
  2. VEMURAFENIB. [Suspect]
     Active Substance: VEMURAFENIB
     Indication: OVARIAN CANCER METASTATIC
     Dosage: MOST RECENT DOSE 11/JUN/2017  PRIOR TO SERIOUS ADVERSE EVENT (SAE).
     Route: 048
     Dates: start: 20170515

REACTIONS (1)
  - Peritonitis bacterial [Not Recovered/Not Resolved]

NARRATIVE: CASE EVENT DATE: 20170612
